FAERS Safety Report 23524470 (Version 1)
Quarter: 2024Q1

REPORT INFORMATION
  Report Type: Spontaneous
  Country: US (occurrence: US)
  Receive Date: 20240214
  Receipt Date: 20240214
  Transmission Date: 20240410
  Serious: Yes (Other)
  Sender: FDA-Public Use
  Company Number: US-BAUSCHBL-2024BNL001567

PATIENT
  Sex: Male

DRUGS (1)
  1. SODIUM CHLORIDE HYPERTONICITY [Suspect]
     Active Substance: SODIUM CHLORIDE
     Indication: Product used for unknown indication
     Route: 065

REACTIONS (2)
  - Cataract operation [Unknown]
  - Product closure removal difficult [Unknown]
